FAERS Safety Report 9607486 (Version 1)
Quarter: 2013Q4

REPORT INFORMATION
  Report Type: Spontaneous
  Country: US (occurrence: None)
  Receive Date: 20131007
  Receipt Date: 20131007
  Transmission Date: 20140711
  Serious: Yes (Disabling)
  Sender: FDA-Public Use
  Company Number: None

PATIENT
  Age: 44 Year
  Sex: Female
  Weight: 86.18 kg

DRUGS (1)
  1. VENLAFAXINE [Suspect]
     Indication: DEPRESSION
     Dosage: TAKEN BY MOUTH
     Dates: start: 20130906, end: 20131013

REACTIONS (6)
  - Paraesthesia [None]
  - Mood altered [None]
  - Crying [None]
  - Emotional disorder [None]
  - Product substitution issue [None]
  - Loss of employment [None]
